FAERS Safety Report 8139792-7 (Version None)
Quarter: 2012Q1

REPORT INFORMATION
  Report Type: 
  Country: None (occurrence: None)
  Receive Date: 20120215
  Receipt Date: 20120213
  Transmission Date: 20120608
  Serious: Yes (Death, Hospitalization)
  Sender: FDA-Public Use
  Company Number: US-ABBOTT-11P-163-0866370-00

PATIENT
  Sex: Male
  Weight: 69.916 kg

DRUGS (10)
  1. LUVOX [Concomitant]
     Indication: ATTENTION DEFICIT/HYPERACTIVITY DISORDER
     Dates: end: 20111017
  2. VITAMIN D [Concomitant]
     Indication: VITAMIN SUPPLEMENTATION
     Dates: end: 20111017
  3. PEG-INTRON [Concomitant]
     Indication: HEPATITIS C
     Dates: start: 20110722, end: 20111005
  4. ATENOLOL [Concomitant]
     Indication: HYPERTENSION
     Dates: end: 20111017
  5. ADDERALL 5 [Concomitant]
     Indication: CEREBRAL PALSY
     Dates: end: 20111017
  6. LUVOX [Concomitant]
     Indication: OBSESSIVE-COMPULSIVE DISORDER
  7. RIBAVIRIN [Concomitant]
     Indication: HEPATITIS C
     Dates: start: 20110722, end: 20111005
  8. INCIVEK [Concomitant]
     Indication: HEPATITIS C
     Dates: end: 20111017
  9. HUMIRA [Suspect]
     Indication: CROHN'S DISEASE
     Dates: start: 20051201, end: 20111017
  10. FOSAMAX [Concomitant]
     Indication: OSTEOPENIA
     Dates: end: 20111017

REACTIONS (3)
  - PNEUMONIA [None]
  - NASOPHARYNGITIS [None]
  - ACUTE RESPIRATORY DISTRESS SYNDROME [None]
